FAERS Safety Report 19543568 (Version 3)
Quarter: 2021Q3

REPORT INFORMATION
  Report Type: Report from Study
  Country: AR (occurrence: AR)
  Receive Date: 20210714
  Receipt Date: 20210730
  Transmission Date: 20211014
  Serious: No
  Sender: FDA-Public Use
  Company Number: AR-BIOGEN-2021BI01028693

PATIENT
  Age: 16 Year
  Sex: Female

DRUGS (1)
  1. TYSABRI [Suspect]
     Active Substance: NATALIZUMAB
     Indication: MULTIPLE SCLEROSIS
     Route: 042
     Dates: start: 20200703

REACTIONS (3)
  - Sensory disturbance [Not Recovered/Not Resolved]
  - Off label use [Not Recovered/Not Resolved]
  - Hypoacusis [Unknown]

NARRATIVE: CASE EVENT DATE: 20200703
